FAERS Safety Report 5954551-9 (Version None)
Quarter: 2008Q4

REPORT INFORMATION
  Report Type: 
  Country: None (occurrence: None)
  Receive Date: 20081112
  Receipt Date: 20081027
  Transmission Date: 20090506
  Serious: Yes (Other)
  Sender: FDA-Public Use
  Company Number: 2008002779

PATIENT
  Age: 65 Year
  Sex: Male

DRUGS (2)
  1. TARCEVA [Suspect]
     Indication: LUNG NEOPLASM MALIGNANT
     Dosage: (150 MG, QD), ORAL
     Route: 048
     Dates: start: 20080101
  2. ANTIBIOTIC NOS [Concomitant]

REACTIONS (6)
  - ACNE [None]
  - BLINDNESS [None]
  - DERMATITIS ACNEIFORM [None]
  - DIARRHOEA [None]
  - RASH [None]
  - VISION BLURRED [None]
